FAERS Safety Report 24976310 (Version 1)
Quarter: 2025Q1

REPORT INFORMATION
  Report Type: Spontaneous
  Country: US (occurrence: US)
  Receive Date: 20250217
  Receipt Date: 20250217
  Transmission Date: 20250409
  Serious: Yes (Death, Other)
  Sender: AMGEN
  Company Number: US-AMGEN-USASP2025029022

PATIENT
  Age: 70 Year
  Sex: Male

DRUGS (7)
  1. PREDNISONE [Suspect]
     Active Substance: PREDNISONE
     Indication: Immunosuppressant drug therapy
     Dosage: 5 MILLIGRAM, QD
     Route: 065
  2. TACROLIMUS [Concomitant]
     Active Substance: TACROLIMUS
     Route: 065
  3. SIROLIMUS [Concomitant]
     Active Substance: SIROLIMUS
     Route: 065
  4. MYCOPHENOLATE MOFETIL [Concomitant]
     Active Substance: MYCOPHENOLATE MOFETIL
     Route: 065
  5. AZATHIOPRINE [Concomitant]
     Active Substance: AZATHIOPRINE
     Route: 065
  6. BELATACEPT [Concomitant]
     Active Substance: BELATACEPT
     Dosage: 5 MILLIGRAM/KILOGRAM, Q2WK
     Route: 065
  7. BELATACEPT [Concomitant]
     Active Substance: BELATACEPT
     Dosage: 5 MILLIGRAM/KILOGRAM, QMO
     Route: 065

REACTIONS (20)
  - Death [Fatal]
  - Pneumonia bacterial [Unknown]
  - Bacteraemia [Unknown]
  - Febrile neutropenia [Unknown]
  - Leukopenia [Unknown]
  - Transplant rejection [Unknown]
  - Opportunistic infection [Unknown]
  - Cytomegalovirus colitis [Unknown]
  - Oesophageal candidiasis [Unknown]
  - Post transplant lymphoproliferative disorder [Unknown]
  - Headache [Unknown]
  - Memory impairment [Unknown]
  - Brain fog [Unknown]
  - Dizziness [Unknown]
  - Tremor [Unknown]
  - Asthenia [Unknown]
  - Eyelid ptosis [Unknown]
  - Malaise [Unknown]
  - Toxicity to various agents [Unknown]
  - Infection [Unknown]
